FAERS Safety Report 6482800-X (Version None)
Quarter: 2009Q4

REPORT INFORMATION
  Report Type: 
  Country: None (occurrence: None)
  Receive Date: 20091209
  Receipt Date: 20091130
  Transmission Date: 20100525
  Serious: Yes (Other)
  Sender: FDA-Public Use
  Company Number: US-JNJFOC-20091200917

PATIENT
  Age: 12 Month
  Sex: Male

DRUGS (3)
  1. TYLENOL (CAPLET) [Suspect]
  2. TYLENOL (CAPLET) [Suspect]
     Indication: PROPHYLAXIS
  3. VACCINATIONS [Concomitant]

REACTIONS (3)
  - MUSCLE TWITCHING [None]
  - PRODUCT LABEL ISSUE [None]
  - TRANSMISSION OF AN INFECTIOUS AGENT VIA A MEDICINAL PRODUCT [None]
